FAERS Safety Report 4328072-3 (Version None)
Quarter: 2004Q1

REPORT INFORMATION
  Report Type: 
  Country: None (occurrence: None)
  Receive Date: 20040331
  Receipt Date: 20040323
  Transmission Date: 20041129
  Serious: Yes (Other)
  Sender: FDA-Public Use
  Company Number: ES-MERCK-0403ESP00038

PATIENT
  Age: 61 Year
  Sex: Female

DRUGS (12)
  1. AMIKACIN [Concomitant]
     Indication: SHOCK
     Route: 065
     Dates: start: 20040201
  2. AMIKACIN [Concomitant]
     Indication: RESPIRATORY DISTRESS
     Route: 065
     Dates: start: 20040201
  3. PRIMAXIN [Suspect]
     Indication: SHOCK
     Route: 042
     Dates: start: 20040201, end: 20040201
  4. PRIMAXIN [Suspect]
     Route: 042
     Dates: start: 20040201, end: 20040201
  5. PRIMAXIN [Suspect]
     Route: 042
     Dates: start: 20040201, end: 20040201
  6. PRIMAXIN [Suspect]
     Route: 042
     Dates: start: 20040201, end: 20040201
  7. PRIMAXIN [Suspect]
     Indication: RESPIRATORY DISTRESS
     Route: 042
     Dates: start: 20040201, end: 20040201
  8. PRIMAXIN [Suspect]
     Route: 042
     Dates: start: 20040201, end: 20040201
  9. PRIMAXIN [Suspect]
     Route: 042
     Dates: start: 20040201, end: 20040201
  10. PRIMAXIN [Suspect]
     Route: 042
     Dates: start: 20040201, end: 20040201
  11. LINEZOLID [Concomitant]
     Indication: SHOCK
     Route: 065
     Dates: start: 20040201
  12. LINEZOLID [Concomitant]
     Indication: RESPIRATORY DISTRESS
     Route: 065
     Dates: start: 20040201

REACTIONS (2)
  - CHOLESTASIS [None]
  - NEPHROPATHY TOXIC [None]
